FAERS Safety Report 6426252-4 (Version None)
Quarter: 2009Q4

REPORT INFORMATION
  Report Type: 
  Country: None (occurrence: None)
  Receive Date: 20091104
  Receipt Date: 20091030
  Transmission Date: 20100525
  Serious: Yes (Other)
  Sender: FDA-Public Use
  Company Number: US-BRISTOL-MYERS SQUIBB COMPANY-14838973

PATIENT
  Age: 34 Year
  Sex: Female
  Weight: 131 kg

DRUGS (13)
  1. COUMADIN [Suspect]
     Dates: start: 20081201
  2. LOVENOX [Suspect]
     Indication: PULMONARY EMBOLISM
     Dosage: 120MG FROM DEC08-UNK DOSE REDUSED TO 40 MG/DAY FROM UNK TO SEP09
     Dates: start: 20081201
  3. LOVENOX [Suspect]
     Indication: COAGULATION FACTOR V LEVEL ABNORMAL
     Dosage: 120MG FROM DEC08-UNK DOSE REDUSED TO 40 MG/DAY FROM UNK TO SEP09
     Dates: start: 20081201
  4. LOVENOX [Suspect]
     Indication: FACTOR VIII DEFICIENCY
     Dosage: 120MG FROM DEC08-UNK DOSE REDUSED TO 40 MG/DAY FROM UNK TO SEP09
     Dates: start: 20081201
  5. ASCORBIC ACID [Concomitant]
  6. BIOTIN [Concomitant]
  7. TOCOPHEROLS [Concomitant]
  8. NICOTINIC ACID [Concomitant]
  9. RETINOL [Concomitant]
  10. MINERAL TAB [Concomitant]
  11. VITAMIN B COMPLEX CAP [Concomitant]
  12. VITAMIN D [Concomitant]
  13. VITAMIN TAB [Concomitant]

REACTIONS (7)
  - DRUG DOSE OMISSION [None]
  - DRUG INEFFECTIVE [None]
  - INFERTILITY FEMALE [None]
  - INJECTION SITE HAEMATOMA [None]
  - INTERNATIONAL NORMALISED RATIO INCREASED [None]
  - PULMONARY EMBOLISM [None]
  - SKIN WARM [None]
